FAERS Safety Report 4469516-6 (Version None)
Quarter: 2004Q3

REPORT INFORMATION
  Report Type: 
  Country: None (occurrence: None)
  Receive Date: 20040920
  Receipt Date: 20040623
  Transmission Date: 20050211
  Serious: Yes (Hospitalization)
  Sender: FDA-Public Use
  Company Number: PHEH2004US06828

PATIENT
  Age: 74 Year
  Sex: Female

DRUGS (3)
  1. ZOMETA [Suspect]
     Dosage: 4 MG
     Dates: start: 20040301
  2. ZOMETA [Suspect]
     Dosage: 4 MG
     Dates: start: 20040524
  3. AREDIA [Suspect]
     Dosage: 90 MG
     Dates: start: 20040329, end: 20040426

REACTIONS (1)
  - RENAL FAILURE [None]
